FAERS Safety Report 14961087 (Version 2)
Quarter: 2018Q3

REPORT INFORMATION
  Report Type: Spontaneous
  Country: US (occurrence: US)
  Receive Date: 20180531
  Receipt Date: 20180815
  Transmission Date: 20181010
  Serious: No
  Sender: FDA-Public Use
  Company Number: US-NEUROCRINE BIOSCIENCES INC.-2018NBI01539

PATIENT
  Sex: Female
  Weight: 86.35 kg

DRUGS (16)
  1. COGENTIN [Concomitant]
     Active Substance: BENZTROPINE MESYLATE
     Dates: start: 20180612
  2. XANAX [Concomitant]
     Active Substance: ALPRAZOLAM
     Dates: start: 20180531
  3. INGREZZA [Suspect]
     Active Substance: VALBENAZINE
     Route: 048
     Dates: start: 20170529, end: 20180619
  4. CARVEDILOL. [Concomitant]
     Active Substance: CARVEDILOL
  5. DEUTETRABENAZINE [Concomitant]
     Active Substance: DEUTETRABENAZINE
  6. LISINOPRIL. [Concomitant]
     Active Substance: LISINOPRIL
  7. ATORVASTATIN CALCIUM. [Concomitant]
     Active Substance: ATORVASTATIN CALCIUM
  8. INGREZZA [Suspect]
     Active Substance: VALBENAZINE
     Route: 048
     Dates: start: 2018
  9. HYDROCHLOROTHIAZIDE. [Concomitant]
     Active Substance: HYDROCHLOROTHIAZIDE
  10. AMLODIPINE BESYLATE. [Concomitant]
     Active Substance: AMLODIPINE BESYLATE
  11. LEXAPRO [Concomitant]
     Active Substance: ESCITALOPRAM OXALATE
  12. TRINTELLIX [Concomitant]
     Active Substance: VORTIOXETINE HYDROBROMIDE
     Dates: start: 20180612
  13. LAMOTRIGINE. [Concomitant]
     Active Substance: LAMOTRIGINE
  14. INGREZZA [Suspect]
     Active Substance: VALBENAZINE
     Indication: TARDIVE DYSKINESIA
     Route: 048
     Dates: start: 20170522, end: 20170528
  15. KLONOPIN [Concomitant]
     Active Substance: CLONAZEPAM
     Dates: start: 20161129
  16. ELIQUIS [Concomitant]
     Active Substance: APIXABAN

REACTIONS (1)
  - Tardive dyskinesia [Recovered/Resolved]

NARRATIVE: CASE EVENT DATE: 2018
